FAERS Safety Report 5145440-0 (Version None)
Quarter: 2006Q4

REPORT INFORMATION
  Report Type: 
  Country: None (occurrence: None)
  Receive Date: 20061101
  Receipt Date: 20061025
  Transmission Date: 20070319
  Serious: Yes (Other)
  Sender: FDA-Public Use
  Company Number: HQWYE554725OCT06

PATIENT
  Sex: 0

DRUGS (1)
  1. CORDAROX [Suspect]
     Dosage: 200 MG TABLET; DAILY, ORAL
     Route: 048

REACTIONS (1)
  - PNEUMONIA PRIMARY ATYPICAL [None]
